FAERS Safety Report 6960051-X (Version None)
Quarter: 2010Q3

REPORT INFORMATION
  Report Type: 
  Country: None (occurrence: None)
  Receive Date: 20100901
  Receipt Date: 20100824
  Transmission Date: 20110219
  Serious: Yes (Other)
  Sender: FDA-Public Use
  Company Number: DE-BAYER-201034007GPV

PATIENT
  Sex: Female
  Weight: 70 kg

DRUGS (6)
  1. BETAFERON [Suspect]
     Indication: MULTIPLE SCLEROSIS
     Route: 058
     Dates: start: 19960101
  2. SIRDALUD [Concomitant]
     Dates: start: 19920101
  3. TRAMAL [Concomitant]
     Dates: start: 19980101
  4. TETRAZEPAM [Concomitant]
     Dosage: 50-150 MG
     Dates: start: 19930101
  5. DYTIDE [Concomitant]
     Dates: start: 20000101
  6. CONCOR [Concomitant]
     Route: 048
     Dates: start: 20000101

REACTIONS (2)
  - ALOPECIA [None]
  - SPASTIC PARALYSIS [None]
